FAERS Safety Report 21000848 (Version 1)
Quarter: 2022Q2

REPORT INFORMATION
  Report Type: Spontaneous
  Country: CA (occurrence: CA)
  Receive Date: 20220623
  Receipt Date: 20220623
  Transmission Date: 20220721
  Serious: Yes (Other)
  Sender: FDA-Public Use
  Company Number: None

PATIENT
  Age: 2 Year
  Sex: Male

DRUGS (3)
  1. ZONOVATE [Suspect]
     Active Substance: TUROCTOCOG ALFA
     Indication: Factor VIII deficiency
     Dosage: 500 IU
     Route: 065
  2. ZONOVATE [Suspect]
     Active Substance: TUROCTOCOG ALFA
     Dosage: 500 IU, BIW
     Route: 065
  3. ZONOVATE [Suspect]
     Active Substance: TUROCTOCOG ALFA
     Dosage: 500 IU, TIW
     Route: 065

REACTIONS (6)
  - Fall [Not Recovered/Not Resolved]
  - Haemorrhage [Not Recovered/Not Resolved]
  - Head injury [Not Recovered/Not Resolved]
  - Respiratory rate decreased [Not Recovered/Not Resolved]
  - Rhinorrhoea [Not Recovered/Not Resolved]
  - Cough [Not Recovered/Not Resolved]
